FAERS Safety Report 5758918-3 (Version None)
Quarter: 2008Q2

REPORT INFORMATION
  Report Type: 
  Country: None (occurrence: None)
  Receive Date: 20080604
  Receipt Date: 20080529
  Transmission Date: 20081010
  Serious: Yes (Other)
  Sender: FDA-Public Use
  Company Number: DE-ROCHE-564714

PATIENT
  Sex: Male
  Weight: 90 kg

DRUGS (2)
  1. LARIAM [Suspect]
     Indication: PROPHYLAXIS
     Route: 048
     Dates: start: 20080308, end: 20080308
  2. LARIAM [Concomitant]
     Indication: MALARIA
     Dosage: DOSING FREQUENCY REPORTED AS 6 TABLETS IN 2 DAYS.
     Dates: start: 19910101, end: 19910101

REACTIONS (7)
  - ALTERED VISUAL DEPTH PERCEPTION [None]
  - BALANCE DISORDER [None]
  - COLOUR BLINDNESS [None]
  - DISTURBANCE IN ATTENTION [None]
  - DIZZINESS [None]
  - HERPES ZOSTER [None]
  - MEMORY IMPAIRMENT [None]
